FAERS Safety Report 5847210-4 (Version None)
Quarter: 2008Q3

REPORT INFORMATION
  Report Type: 
  Country: None (occurrence: None)
  Receive Date: 20080815
  Receipt Date: 20080807
  Transmission Date: 20090109
  Serious: Yes (Hospitalization)
  Sender: FDA-Public Use
  Company Number: US-GENENTECH-262939

PATIENT
  Sex: Female

DRUGS (27)
  1. AVASTIN [Suspect]
     Indication: OVARIAN CANCER
     Dosage: 15 MG/KG, Q3W
     Route: 042
  2. 1-PROPANOL [Concomitant]
     Indication: HYPERTENSION
     Dosage: UNK
  3. MACROBID [Concomitant]
     Indication: DRUG USE FOR UNKNOWN INDICATION
  4. MEGACE [Concomitant]
     Indication: DRUG USE FOR UNKNOWN INDICATION
  5. CLARITIN [Concomitant]
     Indication: DRUG USE FOR UNKNOWN INDICATION
  6. AMBIEN [Concomitant]
     Indication: DRUG USE FOR UNKNOWN INDICATION
  7. ANTIBIOTIC (UNK NAME) [Concomitant]
     Indication: URINARY TRACT INFECTION
  8. PHENERGAN HCL [Concomitant]
     Indication: NAUSEA
  9. PROPRANOLOL [Concomitant]
     Indication: DRUG USE FOR UNKNOWN INDICATION
     Dosage: 60 MG, UNK
     Dates: start: 20040101
  10. PREMARIN [Concomitant]
     Indication: DRUG USE FOR UNKNOWN INDICATION
     Dosage: .062 MG, UNK
     Dates: start: 20010101
  11. M.V.I. [Concomitant]
     Indication: DRUG USE FOR UNKNOWN INDICATION
     Dosage: UNK
     Dates: start: 20030101
  12. CALCIUM CITRATE [Concomitant]
     Indication: DRUG USE FOR UNKNOWN INDICATION
     Dosage: UNK
     Dates: start: 20030101
  13. VITAMIN D [Concomitant]
     Indication: DRUG USE FOR UNKNOWN INDICATION
     Dosage: UNK
     Dates: start: 20030101
  14. MAGNESIUM SULFATE [Concomitant]
     Indication: DRUG USE FOR UNKNOWN INDICATION
  15. DECADRON SRC [Concomitant]
     Indication: DRUG USE FOR UNKNOWN INDICATION
     Dosage: 20 MG, UNK
     Dates: start: 20080303
  16. ATIVAN [Concomitant]
     Indication: DRUG USE FOR UNKNOWN INDICATION
     Dosage: 1 MG, PRN
     Dates: start: 20080301
  17. COMPAZINE [Concomitant]
     Indication: DRUG USE FOR UNKNOWN INDICATION
     Dosage: 10 MG, PRN
     Dates: start: 20080304
  18. PRILOSEC [Concomitant]
     Indication: DRUG USE FOR UNKNOWN INDICATION
     Dosage: 20 MG, UNK
     Dates: start: 20070101
  19. BENADRYL [Concomitant]
     Indication: DRUG USE FOR UNKNOWN INDICATION
     Dosage: 50 MG, UNK
     Dates: start: 20080304
  20. ARANESP [Concomitant]
     Indication: DRUG USE FOR UNKNOWN INDICATION
     Dosage: 500 A?G, UNK
  21. ZOFRAN [Concomitant]
     Indication: DRUG USE FOR UNKNOWN INDICATION
     Dosage: 16 MG, UNK
     Dates: start: 20080303
  22. EFFEXOR [Concomitant]
     Indication: DRUG USE FOR UNKNOWN INDICATION
     Dosage: 37.5 MG, UNK
     Dates: start: 20080213
  23. TYLENOL [Concomitant]
     Indication: DRUG USE FOR UNKNOWN INDICATION
     Dosage: 500 MG, UNK
     Dates: start: 19970101
  24. MIRALAX [Concomitant]
     Indication: DRUG USE FOR UNKNOWN INDICATION
     Dosage: 17 G, UNK
     Dates: start: 20080206
  25. DARVOCET [Concomitant]
     Indication: DRUG USE FOR UNKNOWN INDICATION
     Dosage: 100 MG, PRN
     Dates: start: 20080228
  26. PACLITAXEL [Concomitant]
     Indication: OVARIAN CANCER
     Dosage: 135 MG/M2, Q3W
     Route: 042
  27. CISPLATIN [Concomitant]
     Indication: OVARIAN CANCER
     Dosage: 75 MG/M2, Q3W

REACTIONS (2)
  - PYREXIA [None]
  - URINARY TRACT INFECTION [None]
